FAERS Safety Report 17129864 (Version 1)
Quarter: 2019Q4

REPORT INFORMATION
  Report Type: Spontaneous
  Country: US (occurrence: US)
  Receive Date: 20191115
  Receipt Date: 20191115
  Transmission Date: 20200122
  Serious: Yes (Hospitalization)
  Sender: FDA-Public Use
  Company Number: None

PATIENT
  Age: 76 Year
  Sex: Male
  Weight: 75.75 kg

DRUGS (6)
  1. PREDNISONE. [Suspect]
     Active Substance: PREDNISONE
     Dates: end: 20191026
  2. RITUXIMAB (MOAB C2B8 ANTI CD20, CHIMERIC) [Suspect]
     Active Substance: RITUXIMAB
     Dates: end: 20191023
  3. CYCLOPHOSPHAMIDE. [Suspect]
     Active Substance: CYCLOPHOSPHAMIDE
     Dates: end: 20191028
  4. DOXORUBICIN HYDROCHLORIDE. [Suspect]
     Active Substance: DOXORUBICIN HYDROCHLORIDE
     Dates: end: 20191027
  5. ETOPOSIDE (VP-16) [Suspect]
     Active Substance: ETOPOSIDE
     Dates: end: 20191027
  6. VINCRISTINE SULFATE. [Suspect]
     Active Substance: VINCRISTINE SULFATE
     Dates: end: 20191027

REACTIONS (22)
  - Haemoglobin decreased [None]
  - Coagulopathy [None]
  - Pulmonary artery thrombosis [None]
  - White blood cell count decreased [None]
  - Atelectasis [None]
  - Packed red blood cell transfusion [None]
  - Gastrointestinal lymphoma [None]
  - Upper gastrointestinal haemorrhage [None]
  - Platelet transfusion [None]
  - Platelet count decreased [None]
  - Blood pressure decreased [None]
  - Blood lactate dehydrogenase increased [None]
  - Blood culture positive [None]
  - Neutropenia [None]
  - Pneumonia [None]
  - Blood phosphorus decreased [None]
  - Escherichia infection [None]
  - Atrial fibrillation [None]
  - Vomiting [None]
  - Faeces discoloured [None]
  - Pulmonary embolism [None]
  - Body temperature increased [None]

NARRATIVE: CASE EVENT DATE: 20191103
